FAERS Safety Report 6345939-5 (Version None)
Quarter: 2009Q3

REPORT INFORMATION
  Report Type: 
  Country: None (occurrence: None)
  Receive Date: 20090909
  Receipt Date: 20090902
  Transmission Date: 20100115
  Serious: Yes (Hospitalization)
  Sender: FDA-Public Use
  Company Number: B0592193A

PATIENT
  Sex: Female

DRUGS (6)
  1. LANOXIN [Suspect]
     Indication: DRUG USE FOR UNKNOWN INDICATION
     Dosage: 1TAB PER DAY
     Route: 048
     Dates: start: 20090101, end: 20090811
  2. CARDIRENE [Concomitant]
     Route: 048
  3. ZOLOFT [Concomitant]
  4. UNKNOWN DRUG [Concomitant]
  5. KCL RETARD [Concomitant]
  6. UNKNOWN DRUG [Concomitant]

REACTIONS (2)
  - HEADACHE [None]
  - LOSS OF CONSCIOUSNESS [None]
